FAERS Safety Report 7690936-0 (Version None)
Quarter: 2011Q3

REPORT INFORMATION
  Report Type: 
  Country: None (occurrence: None)
  Receive Date: 20110818
  Receipt Date: 20110803
  Transmission Date: 20111222
  Serious: No
  Sender: FDA-Public Use
  Company Number: US-B.I. PHARMACEUTICALS,INC./RIDGEFIELD-2011-BP-17646BP

PATIENT
  Sex: Female

DRUGS (8)
  1. PREMARIN [Concomitant]
     Route: 048
     Dates: start: 20050906
  2. AMIODARONE HCL [Concomitant]
     Dosage: 200 MG
     Route: 048
     Dates: start: 20110602
  3. PRADAXA [Suspect]
     Indication: CARDIOMYOPATHY
  4. COZAAR [Concomitant]
     Dosage: 50 MG
     Route: 048
     Dates: start: 20110602
  5. LOPID [Concomitant]
     Dosage: 600 MG
     Route: 048
     Dates: start: 20060301
  6. LOVAZA [Concomitant]
     Route: 048
     Dates: start: 20080701
  7. PRADAXA [Suspect]
     Indication: ATRIAL FIBRILLATION
     Dosage: 300 MG
     Route: 048
     Dates: start: 20110602, end: 20110707
  8. COREG [Concomitant]
     Dosage: 80 MG
     Route: 048
     Dates: start: 20110602

REACTIONS (4)
  - HEADACHE [None]
  - GASTROINTESTINAL HAEMORRHAGE [None]
  - MELAENA [None]
  - HAEMATOCHEZIA [None]
